FAERS Safety Report 8432496-2 (Version None)
Quarter: 2012Q2

REPORT INFORMATION
  Report Type: 
  Country: None (occurrence: None)
  Receive Date: 20120613
  Receipt Date: 20120604
  Transmission Date: 20120825
  Serious: Yes (Hospitalization, Other)
  Sender: FDA-Public Use
  Company Number: PHHY2010DE57080

PATIENT
  Sex: Female

DRUGS (12)
  1. EVEROLIMUS [Suspect]
     Indication: RENAL CELL CARCINOMA
     Dosage: 5 MG, DAILY
     Route: 048
     Dates: start: 20091008, end: 20100201
  2. VERAPAMIL [Concomitant]
     Dosage: BID
  3. ESOMEPRAZOLE [Concomitant]
     Dosage: UNK, BID
  4. METOCLOPRAMIDE [Concomitant]
     Dosage: UNK
  5. AMPHOTERICIN B [Concomitant]
  6. CAPTOPRIL [Concomitant]
     Dosage: BID
  7. AMLODIPINE [Concomitant]
     Dosage: BID
  8. LEVOTHYROXINE SODIUM [Concomitant]
     Dosage: BID
  9. OXYCODONE HCL [Concomitant]
     Dosage: BID
  10. TAMOXIFEN CITRATE [Concomitant]
     Dosage: OD
  11. ANTACIDS [Concomitant]
  12. DIPYRONE TAB [Concomitant]

REACTIONS (19)
  - ORAL CANDIDIASIS [None]
  - ASTHENIA [None]
  - NAUSEA [None]
  - DYSPHAGIA [None]
  - MUCOSAL INFLAMMATION [None]
  - GENERAL PHYSICAL HEALTH DETERIORATION [None]
  - BUNDLE BRANCH BLOCK [None]
  - DYSPEPSIA [None]
  - HIATUS HERNIA [None]
  - THYROID CYST [None]
  - RESPIRATORY DISORDER [None]
  - GASTROOESOPHAGEAL REFLUX DISEASE [None]
  - STOMATITIS [None]
  - GASTROINTESTINAL DISORDER [None]
  - OESOPHAGITIS ULCERATIVE [None]
  - ODYNOPHAGIA [None]
  - BARRETT'S OESOPHAGUS [None]
  - SPINAL OSTEOARTHRITIS [None]
  - OSTEOCHONDROSIS [None]
